FAERS Safety Report 23871317 (Version 1)
Quarter: 2024Q2

REPORT INFORMATION
  Report Type: Spontaneous
  Country: US (occurrence: US)
  Receive Date: 20240519
  Receipt Date: 20240519
  Transmission Date: 20240716
  Serious: Yes (Other)
  Sender: FDA-Public Use
  Company Number: US-VIIV HEALTHCARE ULC-US2024061758

PATIENT

DRUGS (1)
  1. JULUCA [Suspect]
     Active Substance: DOLUTEGRAVIR SODIUM\RILPIVIRINE HYDROCHLORIDE
     Indication: HIV infection
     Dosage: 1 DF, QD ONE PILL BY MOUTH ONCE A DAY
     Route: 048

REACTIONS (5)
  - Thrombosis [Unknown]
  - Lung disorder [Unknown]
  - Diarrhoea [Unknown]
  - Mental disorder [Unknown]
  - Product dose omission issue [Unknown]
